FAERS Safety Report 25827379 (Version 1)
Quarter: 2025Q3

REPORT INFORMATION
  Report Type: Spontaneous
  Country: US (occurrence: US)
  Receive Date: 20250920
  Receipt Date: 20250920
  Transmission Date: 20251021
  Serious: Yes (Other)
  Sender: AMGEN
  Company Number: US-AMGEN-USASP2025182602

PATIENT
  Age: 15 Year
  Sex: Male

DRUGS (12)
  1. RITUXIMAB [Suspect]
     Active Substance: RITUXIMAB
     Indication: Heart transplant rejection
     Route: 065
     Dates: start: 2023
  2. PREDNISONE [Suspect]
     Active Substance: PREDNISONE
     Indication: Heart transplant rejection
     Route: 065
     Dates: start: 2023
  3. Immunoglobulin [Concomitant]
     Indication: Heart transplant rejection
     Route: 040
     Dates: start: 2023
  4. TOLODODEKIN ALFA [Concomitant]
     Active Substance: TOLODODEKIN ALFA
     Indication: Heart transplant rejection
     Dosage: 16 MILLIGRAM/KILOGRAM, Q2WK, FOR 3-4 DOSES
     Dates: start: 2023
  5. TOLODODEKIN ALFA [Concomitant]
     Active Substance: TOLODODEKIN ALFA
     Dosage: 16 MILLIGRAM/KILOGRAM, QMO
  6. TOLODODEKIN ALFA [Concomitant]
     Active Substance: TOLODODEKIN ALFA
  7. ACETAMINOPHEN [Concomitant]
     Active Substance: ACETAMINOPHEN
     Dates: start: 2023
  8. DIPHENHYDRAMINE [Concomitant]
     Active Substance: DIPHENHYDRAMINE
     Dates: start: 2023
  9. FAMOTIDINE [Concomitant]
     Active Substance: FAMOTIDINE
     Dates: start: 2023
  10. MONTELUKAST [Concomitant]
     Active Substance: MONTELUKAST
     Dates: start: 2023
  11. METHYLPREDNISOLONE [Concomitant]
     Active Substance: METHYLPREDNISOLONE
     Dates: start: 2023
  12. METHYLPREDNISOLONE [Concomitant]
     Active Substance: METHYLPREDNISOLONE

REACTIONS (3)
  - Heart transplant rejection [Unknown]
  - Drug effective for unapproved indication [Unknown]
  - Off label use [Unknown]

NARRATIVE: CASE EVENT DATE: 20230101
